FAERS Safety Report 25769676 (Version 1)
Quarter: 2025Q3

REPORT INFORMATION
  Report Type: Spontaneous
  Country: US (occurrence: US)
  Receive Date: 20250906
  Receipt Date: 20250906
  Transmission Date: 20251020
  Serious: No
  Sender: GLAXOSMITHKLINE
  Company Number: US-GSK-US2025AMR108679

PATIENT

DRUGS (2)
  1. BENLYSTA [Suspect]
     Active Substance: BELIMUMAB
     Indication: Lupus endocarditis
  2. BENLYSTA [Suspect]
     Active Substance: BELIMUMAB
     Indication: Raynaud^s phenomenon

REACTIONS (1)
  - Off label use [Unknown]
